FAERS Safety Report 5696643-8 (Version None)
Quarter: 2008Q2

REPORT INFORMATION
  Report Type: 
  Country: None (occurrence: None)
  Receive Date: 20080408
  Receipt Date: 20061024
  Transmission Date: 20081010
  Serious: Yes (Other)
  Sender: FDA-Public Use
  Company Number: US-BAYER-US-2006-005862

PATIENT
  Age: 46 Year
  Sex: Female

DRUGS (4)
  1. YASMIN [Suspect]
     Indication: MENSTRUATION IRREGULAR
     Route: 048
     Dates: start: 20060201
  2. PREDNISONE [Concomitant]
  3. PRILOSEC [Concomitant]
  4. PLAQUENIL [Concomitant]

REACTIONS (1)
  - THROMBOCYTOPENIA [None]
